FAERS Safety Report 5388818-2 (Version None)
Quarter: 2007Q3

REPORT INFORMATION
  Report Type: 
  Country: None (occurrence: None)
  Receive Date: 20070712
  Receipt Date: 20070705
  Transmission Date: 20080115
  Serious: Yes (Hospitalization)
  Sender: FDA-Public Use
  Company Number: 2006-00971

PATIENT
  Age: 72 Year
  Sex: Female
  Weight: 72.1 kg

DRUGS (6)
  1. VELCADE [Suspect]
     Indication: NON-HODGKIN'S LYMPHOMA
     Dosage: 1.30 MG/M2, INTRAVENOUS
     Route: 042
     Dates: start: 20060227, end: 20060420
  2. SEENA (SENNA) [Concomitant]
  3. KYTRIL [Concomitant]
  4. TOPRAL (SULTOPRIDE) [Concomitant]
  5. ATIVAN [Concomitant]
  6. WARFARIN SODIUM [Concomitant]

REACTIONS (9)
  - ACCELERATED HYPERTENSION [None]
  - BLOOD CULTURE POSITIVE [None]
  - ENCEPHALOPATHY [None]
  - ILEUS [None]
  - PANCYTOPENIA [None]
  - RENAL ARTERY STENOSIS [None]
  - SMALL INTESTINAL OBSTRUCTION [None]
  - STAPHYLOCOCCAL INFECTION [None]
  - URINARY TRACT INFECTION ENTEROCOCCAL [None]
